FAERS Safety Report 7761148-7 (Version None)
Quarter: 2011Q3

REPORT INFORMATION
  Report Type: 
  Country: None (occurrence: None)
  Receive Date: 20110920
  Receipt Date: 20110914
  Transmission Date: 20111222
  Serious: Yes (Other)
  Sender: FDA-Public Use
  Company Number: US-RB-028139-11

PATIENT

DRUGS (1)
  1. MUCINEX DM [Suspect]
     Route: 048

REACTIONS (6)
  - ASTHENIA [None]
  - DYSPNOEA [None]
  - PARAESTHESIA [None]
  - PRESYNCOPE [None]
  - DIZZINESS [None]
  - HYPOAESTHESIA [None]
